FAERS Safety Report 6687154-1 (Version None)
Quarter: 2010Q2

REPORT INFORMATION
  Report Type: 
  Country: None (occurrence: None)
  Receive Date: 20100414
  Receipt Date: 20100331
  Transmission Date: 20101027
  Serious: Yes (Other)
  Sender: FDA-Public Use
  Company Number: 1-22096501

PATIENT
  Age: 50 Year
  Sex: Male

DRUGS (3)
  1. ATENOLOL [Suspect]
     Indication: HYPERTENSION
     Dosage: 25 MG ONCE DAILY, ORAL
     Route: 048
  2. AMLODIPINE [Concomitant]
  3. PROPOFOL [Concomitant]

REACTIONS (2)
  - ANAESTHETIC COMPLICATION [None]
  - ELECTROENCEPHALOGRAM ABNORMAL [None]
